FAERS Safety Report 8115232-9 (Version None)
Quarter: 2012Q1

REPORT INFORMATION
  Report Type: 
  Country: None (occurrence: None)
  Receive Date: 20120206
  Receipt Date: 20120127
  Transmission Date: 20120608
  Serious: Yes (Hospitalization, Disabling)
  Sender: FDA-Public Use
  Company Number: JP-ASTELLAS-2011JP007340

PATIENT
  Sex: Male
  Weight: 42 kg

DRUGS (12)
  1. CYTARABINE [Concomitant]
     Indication: ACUTE LEUKAEMIA
     Route: 065
  2. CYTARABINE [Concomitant]
     Route: 065
  3. MEROPENEM [Concomitant]
     Indication: SEPSIS
     Dosage: 0.5 G, TID
     Route: 042
     Dates: start: 20110321, end: 20110326
  4. FUNGUARD [Suspect]
     Indication: SEPSIS
     Dosage: 300 MG, UID/QD
     Route: 042
     Dates: start: 20110321, end: 20110402
  5. SOLU-MEDROL [Suspect]
     Indication: ACUTE RESPIRATORY DISTRESS SYNDROME
     Dosage: 1 G, UID/QD
     Route: 042
     Dates: start: 20110321, end: 20110323
  6. VANCOMYCIN [Concomitant]
     Indication: SEPTIC SHOCK
     Dosage: 1.5 G, BID
     Route: 042
     Dates: start: 20110317, end: 20110321
  7. TARGOCID [Concomitant]
     Indication: SEPSIS
     Dosage: 400 MG, BID
     Route: 042
     Dates: start: 20110321, end: 20110321
  8. CYTARABINE [Concomitant]
     Route: 065
  9. ANTIBIOTICS [Concomitant]
     Indication: FEBRILE NEUTROPENIA
     Route: 065
  10. VANCOMYCIN [Concomitant]
     Indication: ACUTE RESPIRATORY DISTRESS SYNDROME
  11. DAUNORUBICIN HCL [Concomitant]
     Indication: ACUTE LEUKAEMIA
     Route: 065
  12. RECOMODULIN [Concomitant]
     Indication: DISSEMINATED INTRAVASCULAR COAGULATION
     Dosage: UNK
     Route: 042
     Dates: start: 20110318, end: 20110322

REACTIONS (1)
  - PANCREATITIS ACUTE [None]
